FAERS Safety Report 5058104-9 (Version None)
Quarter: 2006Q3

REPORT INFORMATION
  Report Type: 
  Country: None (occurrence: None)
  Receive Date: 20060721
  Receipt Date: 20060717
  Transmission Date: 20061208
  Serious: Yes (Hospitalization)
  Sender: FDA-Public Use
  Company Number: 2005145284

PATIENT
  Age: 49 Year
  Sex: Female
  Weight: 71 kg

DRUGS (10)
  1. EPOPROSTENOL [Suspect]
     Indication: PULMONARY HYPERTENSION
     Route: 042
     Dates: start: 20050321
  2. SILDENAFIL CITRATE [Suspect]
     Indication: PULMONARY HYPERTENSION
     Dosage: 20MG THREE TIMES PER DAY
     Route: 048
     Dates: start: 20050623
  3. SPIRONOLACTONE [Concomitant]
  4. CALCICHEW [Concomitant]
  5. WARFARIN SODIUM [Concomitant]
  6. BUMETANIDE [Concomitant]
  7. CLEXANE [Concomitant]
  8. MEBEVERINE [Concomitant]
  9. OXYGEN [Concomitant]
  10. OMEPRAZOLE [Concomitant]

REACTIONS (12)
  - BODY TEMPERATURE INCREASED [None]
  - C-REACTIVE PROTEIN INCREASED [None]
  - CHEST PAIN [None]
  - DYSPNOEA [None]
  - FEELING HOT AND COLD [None]
  - FLUSHING [None]
  - HEADACHE [None]
  - HYPOTENSION [None]
  - PALPITATIONS [None]
  - PARAESTHESIA [None]
  - PULMONARY HYPERTENSION [None]
  - THROAT TIGHTNESS [None]
